FAERS Safety Report 10347182 (Version 3)
Quarter: 2014Q4

REPORT INFORMATION
  Report Type: Spontaneous
  Country: JP (occurrence: JP)
  Receive Date: 20140729
  Receipt Date: 20141010
  Transmission Date: 20150528
  Serious: Yes (Death, Hospitalization, Other)
  Sender: FDA-Public Use
  Company Number: JP-ELI_LILLY_AND_COMPANY-JP201407009350

PATIENT
  Age: 77 Year
  Sex: Male
  Weight: 56.7 kg

DRUGS (5)
  1. VITAMIN B12 [Concomitant]
     Active Substance: CYANOCOBALAMIN
     Dosage: 1MG, DAILY
     Route: 030
     Dates: start: 20121012
  2. ALIMTA [Suspect]
     Active Substance: PEMETREXED DISODIUM
     Dosage: 500 MG/M2, OTHER
     Route: 042
     Dates: start: 20130201, end: 20130201
  3. PANVITAN [Concomitant]
     Dosage: 1G, DAILY
     Route: 048
     Dates: start: 20121012
  4. ALIMTA [Suspect]
     Active Substance: PEMETREXED DISODIUM
     Indication: LUNG ADENOCARCINOMA STAGE II
     Dosage: 500 MG/M2, OTHER
     Route: 042
     Dates: start: 20121101
  5. CARBOPLATIN. [Concomitant]
     Active Substance: CARBOPLATIN
     Indication: NON-SMALL CELL LUNG CANCER
     Dosage: UNK, FOUR COURSES
     Route: 042
     Dates: start: 20121101

REACTIONS (8)
  - Disseminated intravascular coagulation [Unknown]
  - Cancer pain [Unknown]
  - Acute respiratory distress syndrome [Unknown]
  - Respiratory failure [Unknown]
  - Pneumonitis [Fatal]
  - Thrombocytopenia [Unknown]
  - Staphylococcal infection [Unknown]
  - Multi-organ failure [Unknown]

NARRATIVE: CASE EVENT DATE: 20121112
